FAERS Safety Report 15591773 (Version 1)
Quarter: 2018Q4

REPORT INFORMATION
  Report Type: Spontaneous
  Country: FR (occurrence: FR)
  Receive Date: 20181106
  Receipt Date: 20181106
  Transmission Date: 20190205
  Serious: Yes (Other)
  Sender: FDA-Public Use
  Company Number: FR-JNJFOC-20180915318

PATIENT
  Age: 49 Year
  Sex: Female
  Weight: 90 kg

DRUGS (1)
  1. SIMPONI [Suspect]
     Active Substance: GOLIMUMAB
     Indication: ANKYLOSING SPONDYLITIS
     Route: 058
     Dates: start: 2013

REACTIONS (10)
  - Dizziness [Unknown]
  - Insomnia [Unknown]
  - Hypertension [Unknown]
  - Leukoencephalopathy [Unknown]
  - Alopecia [Unknown]
  - Tremor [Unknown]
  - Musculoskeletal stiffness [Not Recovered/Not Resolved]
  - Demyelination [Unknown]
  - Dyspnoea [Unknown]
  - Fatigue [Unknown]

NARRATIVE: CASE EVENT DATE: 201707
